FAERS Safety Report 25106143 (Version 1)
Quarter: 2025Q1

REPORT INFORMATION
  Report Type: Spontaneous
  Country: AU (occurrence: AU)
  Receive Date: 20250321
  Receipt Date: 20250321
  Transmission Date: 20250408
  Serious: Yes (Hospitalization)
  Sender: ROCHE
  Company Number: AU-ROCHE-10000231806

PATIENT
  Age: 77 Year
  Sex: Male

DRUGS (3)
  1. ATEZOLIZUMAB [Suspect]
     Active Substance: ATEZOLIZUMAB
     Indication: Hepatocellular carcinoma
     Route: 065
  2. BEVACIZUMAB [Suspect]
     Active Substance: BEVACIZUMAB
     Indication: Hepatocellular carcinoma
     Route: 065
  3. ALLOPURINOL [Concomitant]
     Active Substance: ALLOPURINOL

REACTIONS (14)
  - Cognitive disorder [Unknown]
  - Confusional state [Unknown]
  - Memory impairment [Unknown]
  - Personality change [Unknown]
  - Morvan syndrome [Unknown]
  - Irritability [Unknown]
  - Mobility decreased [Unknown]
  - Constipation [Unknown]
  - Insomnia [Unknown]
  - Scleroderma [Unknown]
  - Patient elopement [Unknown]
  - Fall [Unknown]
  - Neuromyotonia [Unknown]
  - Muscle contractions involuntary [Unknown]
